FAERS Safety Report 5148305-3 (Version None)
Quarter: 2006Q4

REPORT INFORMATION
  Report Type: 
  Country: None (occurrence: None)
  Receive Date: 20061107
  Receipt Date: 20061027
  Transmission Date: 20070319
  Serious: Yes (Life-Threatening, Hospitalization, Other)
  Sender: FDA-Public Use
  Company Number: 2006AP000940

PATIENT
  Age: 81 Year
  Sex: Female

DRUGS (6)
  1. PRAVASTATIN [Suspect]
     Indication: BLOOD CHOLESTEROL INCREASED
     Dosage: 10 MG; QD;
     Dates: start: 20060701, end: 20060827
  2. CALCIUM CARBONATE (CALCIUM CARBONATE) [Concomitant]
  3. AMITRIPTYLINE HCL [Concomitant]
  4. ACETYLSALICYLIC ACID (AMITRIPTYLINE) [Concomitant]
  5. ATENOLOL [Concomitant]
  6. LEVOTHYROXINE SODIUM [Concomitant]

REACTIONS (2)
  - COLITIS [None]
  - GASTROINTESTINAL HAEMORRHAGE [None]
